FAERS Safety Report 12603460 (Version 1)
Quarter: 2016Q3

REPORT INFORMATION
  Report Type: Spontaneous
  Country: FR (occurrence: FR)
  Receive Date: 20160728
  Receipt Date: 20160728
  Transmission Date: 20161109
  Serious: Yes (Death, Other)
  Sender: FDA-Public Use
  Company Number: FR-PFIZER INC-2015313555

PATIENT
  Age: 83 Year
  Sex: Female

DRUGS (13)
  1. SPECIAFOLDINE [Concomitant]
     Active Substance: FOLIC ACID
     Dosage: 2 DF, WEEKLY (ON WEDNESDAYS)
  2. ZYMAD [Concomitant]
     Active Substance: CHOLECALCIFEROL
     Dosage: 1 AMPOULE EVERY 2 MONTHS
  3. COLPOTROPHINE [Concomitant]
     Active Substance: PROMESTRIENE
     Dosage: 3 TIMES A WEEK
  4. XALATAN [Concomitant]
     Active Substance: LATANOPROST
     Dosage: 1 GTT DROP, DAILY
     Route: 047
  5. IMETH [Suspect]
     Active Substance: METHOTREXATE SODIUM
     Indication: RHEUMATOID ARTHRITIS
     Dosage: 6 TABLETS TOOK IN TOTAL WITHIN 10 DAYS
     Route: 048
     Dates: start: 20150817, end: 20150826
  6. DAFALGAN [Concomitant]
     Active Substance: ACETAMINOPHEN
     Indication: PAIN
     Dosage: 1 G, (EVERY 8 HOURS)
  7. SPAGULAX [Concomitant]
     Active Substance: PLANTAGO OVATA SEED
     Dosage: 1 DF, DAILY
  8. BISOCE [Concomitant]
     Active Substance: BISOPROLOL
     Dosage: 2 DF, DAILY (MORNING AND EVENING)
  9. COVERSYL [Concomitant]
     Active Substance: PERINDOPRIL
     Dosage: 1 DF DAILY (IN THE MORNING)
  10. LOXEN [Concomitant]
     Active Substance: NICARDIPINE HYDROCHLORIDE
     Dosage: 1 DF, 2X/DAY (MORNING AND EVENING)
  11. IMETH [Suspect]
     Active Substance: METHOTREXATE SODIUM
     Dosage: LAST 2 TABLETS IN THE MORNING OF THURSDAY 27-AUG-2015
     Route: 048
     Dates: start: 20150827, end: 20150827
  12. PREDNISONE. [Concomitant]
     Active Substance: PREDNISONE
     Dosage: 2 DF, DAILY ( IN THE MORNING)
  13. ZYMAD [Concomitant]
     Active Substance: CHOLECALCIFEROL
     Dosage: 1 AMPOULE EVERY FORTNIGHT

REACTIONS (11)
  - Inappropriate schedule of drug administration [Unknown]
  - Stomatitis [Fatal]
  - Septic shock [Fatal]
  - Back pain [Unknown]
  - Diarrhoea [Unknown]
  - Overdose [Fatal]
  - Somnolence [Unknown]
  - Sluggishness [Unknown]
  - Dysphagia [Unknown]
  - Drug dispensing error [Unknown]
  - Febrile bone marrow aplasia [Fatal]

NARRATIVE: CASE EVENT DATE: 201508
